FAERS Safety Report 7954713-5 (Version None)
Quarter: 2011Q4

REPORT INFORMATION
  Report Type: 
  Country: None (occurrence: None)
  Receive Date: 20111202
  Receipt Date: 20111128
  Transmission Date: 20120403
  Serious: Yes (Hospitalization)
  Sender: FDA-Public Use
  Company Number: CA-ABBOTT-11P-028-0878855-00

PATIENT
  Sex: Female

DRUGS (2)
  1. HUMIRA [Suspect]
     Indication: CROHN'S DISEASE
     Route: 058
     Dates: start: 20110921
  2. HUMIRA [Suspect]
     Route: 058
     Dates: start: 20111123

REACTIONS (2)
  - HOSPITALISATION [None]
  - DRUG INEFFECTIVE [None]
